FAERS Safety Report 18149212 (Version 1)
Quarter: 2020Q3

REPORT INFORMATION
  Report Type: Report from Study
  Country: None (occurrence: US)
  Receive Date: 20200813
  Receipt Date: 20200813
  Transmission Date: 20201103
  Serious: Yes (Hospitalization, Other)
  Sender: FDA-Public Use
  Company Number: US-ABBVIE-20K-163-3486593-00

PATIENT
  Age: 70 Year
  Sex: Female
  Weight: 68.55 kg

DRUGS (1)
  1. HUMIRA [Suspect]
     Active Substance: ADALIMUMAB
     Indication: RHEUMATOID ARTHRITIS
     Route: 058
     Dates: start: 2014

REACTIONS (3)
  - Nephrolithiasis [Not Recovered/Not Resolved]
  - Abdominal pain upper [Recovering/Resolving]
  - Surgical failure [Unknown]

NARRATIVE: CASE EVENT DATE: 2020
